FAERS Safety Report 8483110-1 (Version None)
Quarter: 2012Q3

REPORT INFORMATION
  Report Type: 
  Country: None (occurrence: None)
  Receive Date: 20120702
  Receipt Date: 20120618
  Transmission Date: 20120928
  Serious: No
  Sender: FDA-Public Use
  Company Number: US-ASTRAZENECA-2010SE07098

PATIENT
  Age: 75 Year
  Sex: Female

DRUGS (3)
  1. CRESTOR [Suspect]
     Route: 048
  2. TOPROL-XL [Suspect]
     Route: 048
  3. NEXIUM [Suspect]
     Indication: GASTROOESOPHAGEAL REFLUX DISEASE
     Route: 048

REACTIONS (8)
  - PARKINSON'S DISEASE [None]
  - HYPERTENSION [None]
  - MUSCULAR WEAKNESS [None]
  - MALAISE [None]
  - NERVE COMPRESSION [None]
  - TREMOR [None]
  - GASTROOESOPHAGEAL REFLUX DISEASE [None]
  - PAIN [None]
